FAERS Safety Report 13768449 (Version 1)
Quarter: 2017Q3

REPORT INFORMATION
  Report Type: Spontaneous
  Country: US (occurrence: US)
  Receive Date: 20170719
  Receipt Date: 20170719
  Transmission Date: 20171127
  Serious: Yes (Life-Threatening, Hospitalization)
  Sender: FDA-Public Use
  Company Number: None

PATIENT
  Age: 56 Year
  Sex: Female
  Weight: 63.4 kg

DRUGS (1)
  1. IMODIUM [Suspect]
     Active Substance: LOPERAMIDE HYDROCHLORIDE
     Indication: DIARRHOEA
     Dosage: OTHER FREQUENCY:20-30 TABS DAILY;?
     Route: 048

REACTIONS (3)
  - Ventricular fibrillation [None]
  - Incorrect dose administered [None]
  - Acute myocardial infarction [None]

NARRATIVE: CASE EVENT DATE: 20170716
